FAERS Safety Report 5060750-3 (Version None)
Quarter: 2006Q3

REPORT INFORMATION
  Report Type: 
  Country: None (occurrence: None)
  Receive Date: 20060721
  Receipt Date: 20060721
  Transmission Date: 20061208
  Serious: Yes (Death)
  Sender: FDA-Public Use
  Company Number: None

PATIENT
  Age: 51 Year
  Sex: Female
  Weight: 45 kg

DRUGS (2)
  1. HYDREA [Suspect]
     Dosage: 500MG  DAILY  PO
     Route: 048
  2. VANCOMYCIN [Suspect]
     Dosage: 1 GRAM   DAILY   IV
     Route: 042

REACTIONS (5)
  - ACUTE MYELOID LEUKAEMIA [None]
  - CARDIO-RESPIRATORY ARREST [None]
  - EOSINOPHILIA [None]
  - NEPHRITIS INTERSTITIAL [None]
  - THROMBOCYTOPENIA [None]
